FAERS Safety Report 23064707 (Version 1)
Quarter: 2023Q4

REPORT INFORMATION
  Report Type: Spontaneous
  Country: US (occurrence: None)
  Receive Date: 20231013
  Receipt Date: 20231013
  Transmission Date: 20240109
  Serious: Yes (Other)
  Sender: FDA-Public Use
  Company Number: None

PATIENT
  Age: 44 Year
  Sex: Female

DRUGS (1)
  1. SUBLOCADE [Suspect]
     Active Substance: BUPRENORPHINE
     Indication: Drug use disorder
     Dosage: OTHER FREQUENCY : EVERY 28 DAYS;?
     Route: 058
     Dates: start: 20231009

REACTIONS (7)
  - Injection site erythema [None]
  - Injection site warmth [None]
  - Skin irritation [None]
  - Skin warm [None]
  - Pruritus [None]
  - Injection site swelling [None]
  - Hypersensitivity [None]

NARRATIVE: CASE EVENT DATE: 20231011
